FAERS Safety Report 6466506-9 (Version None)
Quarter: 2009Q4

REPORT INFORMATION
  Report Type: 
  Country: None (occurrence: None)
  Receive Date: 20091202
  Receipt Date: 20091118
  Transmission Date: 20100525
  Serious: Yes (Other)
  Sender: FDA-Public Use
  Company Number: US-SANOFI-AVENTIS-2009SA003568

PATIENT
  Sex: Female

DRUGS (9)
  1. MULTAQ [Suspect]
     Indication: ATRIAL FIBRILLATION
     Route: 048
     Dates: start: 20090101
  2. MULTI-VITAMINS [Concomitant]
  3. VITAMIN B COMPLEX CAP [Concomitant]
  4. LOVAZA [Concomitant]
  5. COENZYME Q10 [Concomitant]
  6. DIGESTIVES, INCL ENZYMES [Concomitant]
  7. PEPCID AC [Concomitant]
  8. ROWASA [Concomitant]
  9. ALL OTHER THERAPEUTIC PRODUCTS [Concomitant]

REACTIONS (2)
  - DYSPNOEA [None]
  - VENTRICULAR TACHYCARDIA [None]
